FAERS Safety Report 9257343 (Version 1)
Quarter: 2013Q2

REPORT INFORMATION
  Report Type: Spontaneous
  Country: US (occurrence: US)
  Receive Date: 20130426
  Receipt Date: 20130426
  Transmission Date: 20140414
  Serious: Yes (Other)
  Sender: FDA-Public Use
  Company Number: US-BAYER-2013-051435

PATIENT
  Age: 48 Year
  Sex: Female

DRUGS (12)
  1. YAZ [Suspect]
     Indication: CONTRACEPTION
  2. BUPROPION HYDROCHLORIDE [Concomitant]
     Dosage: 150 MG, UNK
     Route: 048
  3. BUPAP [Concomitant]
     Route: 048
  4. DIAZEPAM [Concomitant]
     Dosage: 2 MG, UNK
  5. DOXYCYCLINE [Concomitant]
     Dosage: 150 MG, UNK
     Route: 048
  6. ERYTHROMYCIN [Concomitant]
     Dosage: 2 %, UNK
  7. ALCLOMETASONE DIPROPIONATE [Concomitant]
     Dosage: 0.05 %, UNK
  8. PANTOPRAZOLE SODIUM [Concomitant]
     Dosage: 40 MG, UNK
  9. TRIFLURIDINE [Concomitant]
     Dosage: 1 %, UNK
  10. VALACICLOVIR HYDROCHLORIDE [Concomitant]
     Dosage: 1 G, UNK
  11. LAMISIL [Concomitant]
     Dosage: 250 MG, UNK
     Route: 048
  12. LORTAB [Concomitant]

REACTIONS (1)
  - Deep vein thrombosis [Recovered/Resolved]
